FAERS Safety Report 23803091 (Version 1)
Quarter: 2024Q2

REPORT INFORMATION
  Report Type: Spontaneous
  Country: US (occurrence: None)
  Receive Date: 20240430
  Receipt Date: 20240430
  Transmission Date: 20240716
  Serious: No
  Sender: FDA-Public Use
  Company Number: None

PATIENT
  Age: 27 Year
  Sex: Female

DRUGS (5)
  1. ADAKVEO [Suspect]
     Active Substance: CRIZANLIZUMAB-TMCA
     Indication: Sickle cell disease
     Dosage: FREQUENCY : MONTHLY;?
     Route: 042
     Dates: start: 202404
  2. NORMAL SALINE FLUSH [Concomitant]
  3. EPINEPHRINE AUTO-INJ [Concomitant]
  4. SODIUM CHLOR [Concomitant]
  5. SODIUM CHLOR [Concomitant]

REACTIONS (1)
  - Sickle cell anaemia with crisis [None]

NARRATIVE: CASE EVENT DATE: 20240425
